FAERS Safety Report 6309049-5 (Version None)
Quarter: 2009Q3

REPORT INFORMATION
  Report Type: 
  Country: None (occurrence: None)
  Receive Date: 20090814
  Receipt Date: 20090806
  Transmission Date: 20100115
  Serious: Yes (Hospitalization, Other)
  Sender: FDA-Public Use
  Company Number: US-BIOGENIDEC-2009BI013088

PATIENT
  Age: 67 Year
  Sex: Female
  Weight: 68 kg

DRUGS (20)
  1. AVONEX [Suspect]
     Indication: MULTIPLE SCLEROSIS
     Route: 030
  2. AVONEX [Suspect]
     Route: 030
     Dates: start: 19980501
  3. ONDANSETRON HCL [Concomitant]
     Route: 048
  4. FLUOROURACIL [Concomitant]
     Route: 042
  5. LEUCOVORIN CALCIUM [Concomitant]
     Route: 042
  6. OXALIPLATIN [Concomitant]
     Route: 042
  7. MAGNESIUM SULFATE [Concomitant]
     Route: 042
  8. CALCIUM GLUCONATE [Concomitant]
     Route: 042
  9. DEXAMETHASONE SODIUM PHOSPHATE [Concomitant]
     Route: 042
  10. LORAZEPAM [Concomitant]
     Route: 048
  11. PROCHLORPERAZINE MALEATE [Concomitant]
     Route: 048
  12. ZOVIRAX [Concomitant]
     Route: 048
  13. VASOTEC [Concomitant]
     Route: 048
  14. PREMARIN [Concomitant]
     Route: 048
  15. NORVASC [Concomitant]
     Route: 048
  16. HYDROCHLOROTHIAZIDE [Concomitant]
     Route: 048
  17. GUANFACINE HYDROCHLORIDE [Concomitant]
     Route: 048
  18. FIORINAL [Concomitant]
     Route: 048
  19. DETROL [Concomitant]
     Route: 048
  20. ATENOLOL [Concomitant]
     Route: 048

REACTIONS (9)
  - COLON CANCER STAGE III [None]
  - CONSTIPATION [None]
  - FATIGUE [None]
  - IRON DEFICIENCY ANAEMIA [None]
  - NEUROPATHY PERIPHERAL [None]
  - PARAESTHESIA [None]
  - PARAESTHESIA ORAL [None]
  - PRECANCEROUS CELLS PRESENT [None]
  - THROMBOCYTOPENIA [None]
